FAERS Safety Report 10061409 (Version 1)
Quarter: 2014Q2

REPORT INFORMATION
  Report Type: Spontaneous
  Country: ZA (occurrence: ZA)
  Receive Date: 20140407
  Receipt Date: 20140407
  Transmission Date: 20141212
  Serious: Yes (Hospitalization)
  Sender: FDA-Public Use
  Company Number: ZA-BAYER-2014-048688

PATIENT
  Age: 18 Year
  Sex: Female

DRUGS (3)
  1. YAZ [Suspect]
     Dosage: UNK
  2. ANDROCUR 10 MG [Suspect]
     Indication: ACNE
     Dosage: UNK
  3. CYPROTERONE ACETATE W/ETHINYLESTRADIOL [Suspect]
     Indication: ORAL CONTRACEPTION
     Dosage: 1 DF, QD
     Route: 048
     Dates: start: 201310

REACTIONS (3)
  - Pulmonary embolism [Not Recovered/Not Resolved]
  - Syncope [Not Recovered/Not Resolved]
  - Coma [Not Recovered/Not Resolved]
